FAERS Safety Report 9253941 (Version 1)
Quarter: 2013Q2

REPORT INFORMATION
  Report Type: Spontaneous
  Country: US (occurrence: US)
  Receive Date: 20130425
  Receipt Date: 20130425
  Transmission Date: 20140414
  Serious: Yes (Hospitalization)
  Sender: FDA-Public Use
  Company Number: US-BAYER-2013-051728

PATIENT
  Age: 35 Year
  Sex: Female
  Weight: 92.06 kg

DRUGS (8)
  1. YAZ [Suspect]
     Indication: CONTRACEPTION
  2. LEXAPRO [Concomitant]
     Indication: DEPRESSION
     Dosage: 10 TO 20 MG DAILY
     Dates: start: 20100223
  3. LEXAPRO [Concomitant]
     Indication: PANIC REACTION
  4. CEFDINIR [Concomitant]
     Dosage: 300 MG, BID
     Dates: start: 20100310
  5. MOVIPREP [Concomitant]
     Dosage: UNK
     Dates: start: 20100423
  6. VITAMIN D [Concomitant]
     Dosage: 2000 IU, DAILY
     Dates: start: 20100425
  7. ALEVE [Concomitant]
     Dosage: 2 TABLETS DAILY
     Dates: start: 20100425
  8. QUESTRAN [Concomitant]
     Dosage: DAILY PRN
     Dates: start: 20100518

REACTIONS (1)
  - Pulmonary embolism [Recovered/Resolved]
